FAERS Safety Report 7506862-3 (Version None)
Quarter: 2011Q2

REPORT INFORMATION
  Report Type: 
  Country: None (occurrence: None)
  Receive Date: 20110526
  Receipt Date: 20110516
  Transmission Date: 20111010
  Serious: Yes (Hospitalization, Other)
  Sender: FDA-Public Use
  Company Number: B0721655A

PATIENT
  Sex: Female

DRUGS (1)
  1. VOTRIENT [Suspect]
     Route: 065
     Dates: start: 20110403, end: 20110503

REACTIONS (5)
  - VOMITING [None]
  - NAUSEA [None]
  - CARDIAC DISORDER [None]
  - LUNG DISORDER [None]
  - DECREASED APPETITE [None]
